FAERS Safety Report 4929219-8 (Version None)
Quarter: 2006Q1

REPORT INFORMATION
  Report Type: 
  Country: None (occurrence: None)
  Receive Date: 20060228
  Receipt Date: 20060228
  Transmission Date: 20060701
  Serious: Yes (Hospitalization)
  Sender: FDA-Public Use
  Company Number: None

PATIENT
  Age: 80 Year
  Sex: Female
  Weight: 21.7727 kg

DRUGS (2)
  1. TEQUIN [Suspect]
     Indication: DYSURIA
     Dosage: 200 MG STAT IVPB
     Route: 042
     Dates: start: 20060223
  2. TEQUIN [Suspect]
     Indication: HAEMATURIA
     Dosage: 200 MG STAT IVPB
     Route: 042
     Dates: start: 20060223

REACTIONS (1)
  - BLOOD GLUCOSE INCREASED [None]
